FAERS Safety Report 4978487-5 (Version None)
Quarter: 2006Q2

REPORT INFORMATION
  Report Type: 
  Country: None (occurrence: None)
  Receive Date: 20060420
  Receipt Date: 20060323
  Transmission Date: 20061013
  Serious: Yes (Death, Life-Threatening, Hospitalization)
  Sender: FDA-Public Use
  Company Number: US-ABBOTT-06P-163-0328858-00

PATIENT
  Sex: Male
  Weight: 59.474 kg

DRUGS (20)
  1. RITONAVIR SOFT GELATIN CAPSULES [Suspect]
     Indication: HIV INFECTION
     Route: 048
     Dates: start: 20060221, end: 20060309
  2. KALETRA [Concomitant]
     Indication: HIV INFECTION
     Route: 048
     Dates: start: 20040901
  3. TMC125 [Concomitant]
     Indication: HIV INFECTION
     Route: 048
     Dates: start: 20060221, end: 20060309
  4. TMC114 [Concomitant]
     Indication: HIV INFECTION
     Route: 048
     Dates: start: 20060221, end: 20060309
  5. SAQUINAVIR MESILATE [Concomitant]
     Indication: HIV INFECTION
     Route: 048
     Dates: start: 20040901
  6. TRUVADA [Concomitant]
     Indication: HIV INFECTION
     Route: 048
     Dates: start: 20040901
  7. FUZEON [Concomitant]
     Indication: HIV INFECTION
     Route: 058
     Dates: start: 20060221
  8. EPZICOM [Concomitant]
     Indication: HIV INFECTION
     Route: 048
     Dates: start: 20060221
  9. GABAPENTIN [Concomitant]
     Indication: NEUROPATHY PERIPHERAL
     Route: 048
  10. AZITHROMYCIN [Concomitant]
     Indication: MYCOBACTERIUM AVIUM COMPLEX INFECTION
     Route: 048
  11. BACTRIM [Concomitant]
     Indication: PNEUMOCYSTIS JIROVECI PNEUMONIA
     Route: 048
  12. LORATADINE [Concomitant]
     Indication: RHINITIS ALLERGIC
     Route: 048
  13. PHENERGAN EXPECTORANT W/ CODEINE [Concomitant]
     Indication: COUGH
     Route: 048
  14. HYDROCORTISONE [Concomitant]
     Indication: RASH
     Route: 061
  15. CLOTRIMAZOLE [Concomitant]
     Indication: RASH
     Route: 061
  16. PSEUDOEPHEDRINE HCL [Concomitant]
     Indication: DRUG USE FOR UNKNOWN INDICATION
     Route: 048
  17. NICOTINE [Concomitant]
     Indication: DRUG USE FOR UNKNOWN INDICATION
  18. PIPERAZINE [Concomitant]
     Indication: DRUG USE FOR UNKNOWN INDICATION
  19. CIPROFLOXACIN HYDROCHLORIDE [Concomitant]
     Indication: DRUG USE FOR UNKNOWN INDICATION
  20. TESTOSTERONE [Concomitant]
     Indication: DRUG USE FOR UNKNOWN INDICATION
     Route: 030

REACTIONS (12)
  - GASTROINTESTINAL HAEMORRHAGE [None]
  - GINGIVAL BLEEDING [None]
  - LYMPHOMA [None]
  - MULTIPLE-DRUG RESISTANCE [None]
  - OPPORTUNISTIC INFECTION [None]
  - ORAL SOFT TISSUE DISORDER [None]
  - PANCYTOPENIA [None]
  - PNEUMONIA [None]
  - PULMONARY HILUM MASS [None]
  - RENAL FAILURE ACUTE [None]
  - SEPSIS [None]
  - VOMITING [None]
